FAERS Safety Report 6807367-5 (Version None)
Quarter: 2010Q2

REPORT INFORMATION
  Report Type: 
  Country: None (occurrence: None)
  Receive Date: 20100629
  Receipt Date: 20081120
  Transmission Date: 20101027
  Serious: No
  Sender: FDA-Public Use
  Company Number: US-PFIZER INC-2008062667

PATIENT
  Sex: Female
  Weight: 63.181 kg

DRUGS (5)
  1. REVATIO [Suspect]
     Indication: PULMONARY HYPERTENSION
     Dosage: 5 EVERY 1 DAYS
     Dates: start: 20060101, end: 20080601
  2. ZETIA [Concomitant]
  3. POTASSIUM [Concomitant]
  4. ANTIHYPERTENSIVES [Concomitant]
  5. REMODULIN [Concomitant]

REACTIONS (3)
  - DRUG INEFFECTIVE [None]
  - DYSPNOEA [None]
  - FATIGUE [None]
